FAERS Safety Report 6440303-2 (Version None)
Quarter: 2009Q4

REPORT INFORMATION
  Report Type: 
  Country: None (occurrence: None)
  Receive Date: 20091113
  Receipt Date: 20091105
  Transmission Date: 20100525
  Serious: Yes (Death)
  Sender: FDA-Public Use
  Company Number: JP-PFIZER INC-2009243462

PATIENT
  Age: 75 Year
  Sex: Male
  Weight: 48.5 kg

DRUGS (8)
  1. CELECOX [Suspect]
     Indication: RHEUMATOID ARTHRITIS
     Dosage: 400 MG, 2X/DAY
     Route: 048
     Dates: start: 20080519, end: 20090401
  2. INDOMETACIN [Concomitant]
  3. D ALFA [Concomitant]
     Indication: OSTEOPOROSIS
     Dosage: UNK
     Dates: start: 20080519, end: 20090401
  4. RIMATIL [Concomitant]
     Indication: RHEUMATOID ARTHRITIS
     Dosage: UNK
     Dates: start: 20070305, end: 20090401
  5. BONALON [Concomitant]
     Indication: OSTEOPOROSIS
     Dosage: UNK
     Dates: start: 20080310, end: 20090401
  6. MUCOSTA [Concomitant]
     Indication: GASTRITIS
     Dosage: UNK
     Dates: start: 20060324, end: 20090401
  7. AZULFIDINE [Concomitant]
     Indication: RHEUMATOID ARTHRITIS
     Dosage: UNK
     Dates: start: 20080729, end: 20090401
  8. ZYRTEC [Concomitant]
     Indication: PRURITUS
     Dosage: UNK
     Dates: start: 20081215, end: 20090401

REACTIONS (1)
  - PNEUMONIA [None]
